FAERS Safety Report 7466489-9 (Version None)
Quarter: 2011Q1

REPORT INFORMATION
  Report Type: 
  Country: None (occurrence: None)
  Receive Date: 20110302
  Receipt Date: 20101019
  Transmission Date: 20110831
  Serious: Yes (Death, Hospitalization, Other)
  Sender: FDA-Public Use
  Company Number: 163-21880-10070846

PATIENT
  Age: 65 Year
  Sex: Female

DRUGS (2)
  1. REVLIMID [Suspect]
     Indication: MULTIPLE MYELOMA
     Dosage: 25 MG, 1 IN 1 D, PO, 10 MG, DAILY FOR 21 DAYS, PO
     Route: 048
     Dates: start: 20100401, end: 20100601
  2. REVLIMID [Suspect]
     Indication: MULTIPLE MYELOMA
     Dosage: 25 MG, 1 IN 1 D, PO, 10 MG, DAILY FOR 21 DAYS, PO
     Route: 048
     Dates: start: 20081111, end: 20100410

REACTIONS (3)
  - HEAD INJURY [None]
  - CEREBRAL HAEMORRHAGE TRAUMATIC [None]
  - FALL [None]
